FAERS Safety Report 7408521-4 (Version None)
Quarter: 2011Q1

REPORT INFORMATION
  Report Type: 
  Country: None (occurrence: None)
  Receive Date: 20110301
  Receipt Date: 20100830
  Transmission Date: 20110831
  Serious: Yes (Hospitalization)
  Sender: FDA-Public Use
  Company Number: US-JNJFOC-20100907619

PATIENT
  Age: 40 Year
  Sex: Female
  Weight: 40.8237 kg

DRUGS (17)
  1. HUMIRA [Suspect]
     Indication: RHEUMATOID ARTHRITIS
     Dosage: 40 MG, 1 IN 1 WEEK, 40 MG, 4 IN 1 DAY, 40 MG, 1 IN 2 WEEK, 40 MG, 1 IN 1 WEEK, 40 MG, 4 IN 1 DAY
     Dates: start: 20100101, end: 20100501
  2. HUMIRA [Suspect]
     Indication: CROHN'S DISEASE
     Dosage: 40 MG, 1 IN 1 WEEK, 40 MG, 4 IN 1 DAY, 40 MG, 1 IN 2 WEEK, 40 MG, 1 IN 1 WEEK, 40 MG, 4 IN 1 DAY
     Dates: start: 20100101, end: 20100501
  3. HUMIRA [Suspect]
     Indication: RHEUMATOID ARTHRITIS
     Dosage: 40 MG, 1 IN 1 WEEK, 40 MG, 4 IN 1 DAY, 40 MG, 1 IN 2 WEEK, 40 MG, 1 IN 1 WEEK, 40 MG, 4 IN 1 DAY
     Dates: start: 20060101, end: 20070101
  4. HUMIRA [Suspect]
     Indication: CROHN'S DISEASE
     Dosage: 40 MG, 1 IN 1 WEEK, 40 MG, 4 IN 1 DAY, 40 MG, 1 IN 2 WEEK, 40 MG, 1 IN 1 WEEK, 40 MG, 4 IN 1 DAY
     Dates: start: 20060101, end: 20070101
  5. HUMIRA [Suspect]
     Indication: RHEUMATOID ARTHRITIS
     Dosage: 40 MG, 1 IN 1 WEEK, 40 MG, 4 IN 1 DAY, 40 MG, 1 IN 2 WEEK, 40 MG, 1 IN 1 WEEK, 40 MG, 4 IN 1 DAY
     Dates: start: 20100729, end: 20100729
  6. HUMIRA [Suspect]
     Indication: CROHN'S DISEASE
     Dosage: 40 MG, 1 IN 1 WEEK, 40 MG, 4 IN 1 DAY, 40 MG, 1 IN 2 WEEK, 40 MG, 1 IN 1 WEEK, 40 MG, 4 IN 1 DAY
     Dates: start: 20100729, end: 20100729
  7. HUMIRA [Suspect]
     Indication: RHEUMATOID ARTHRITIS
     Dosage: 40 MG, 1 IN 1 WEEK, 40 MG, 4 IN 1 DAY, 40 MG, 1 IN 2 WEEK, 40 MG, 1 IN 1 WEEK, 40 MG, 4 IN 1 DAY
     Dates: start: 20100101, end: 20100101
  8. HUMIRA [Suspect]
     Indication: CROHN'S DISEASE
     Dosage: 40 MG, 1 IN 1 WEEK, 40 MG, 4 IN 1 DAY, 40 MG, 1 IN 2 WEEK, 40 MG, 1 IN 1 WEEK, 40 MG, 4 IN 1 DAY
     Dates: start: 20100101, end: 20100101
  9. HUMIRA [Suspect]
     Indication: RHEUMATOID ARTHRITIS
     Dosage: 40 MG, 1 IN 1 WEEK, 40 MG, 4 IN 1 DAY, 40 MG, 1 IN 2 WEEK, 40 MG, 1 IN 1 WEEK, 40 MG, 4 IN 1 DAY
     Dates: start: 20100501, end: 20100729
  10. HUMIRA [Suspect]
     Indication: CROHN'S DISEASE
     Dosage: 40 MG, 1 IN 1 WEEK, 40 MG, 4 IN 1 DAY, 40 MG, 1 IN 2 WEEK, 40 MG, 1 IN 1 WEEK, 40 MG, 4 IN 1 DAY
     Dates: start: 20100501, end: 20100729
  11. LORATADINE [Concomitant]
  12. CARISOPRODOL (CARISOPRODOL) [Concomitant]
  13. MELOXICAM [Concomitant]
  14. MOTRIN [Suspect]
     Indication: RHEUMATOID ARTHRITIS
     Dates: start: 20100101, end: 20100101
  15. ESOMEPRAZOLE (ESOMEPRAZOLE) [Concomitant]
  16. VALIUM [Concomitant]
  17. ALL OTHER THERAPEUTIC PRODUCTS (ALL OTHER THERAPEUTIC PRODUCTS) [Concomitant]

REACTIONS (1)
  - GASTRIC ULCER [None]
